FAERS Safety Report 20674437 (Version 2)
Quarter: 2022Q2

REPORT INFORMATION
  Report Type: Report from Study
  Country: PH (occurrence: PH)
  Receive Date: 20220405
  Receipt Date: 20220415
  Transmission Date: 20220720
  Serious: Yes (Death)
  Sender: FDA-Public Use
  Company Number: PH-NOVARTISPH-NVSC2022PH077119

PATIENT

DRUGS (1)
  1. ENTRESTO [Suspect]
     Active Substance: SACUBITRIL\VALSARTAN
     Indication: Product used for unknown indication
     Dosage: UNK
     Route: 065

REACTIONS (7)
  - Acute myocardial infarction [Fatal]
  - Hypertension [Fatal]
  - Cardiac failure [Fatal]
  - Cardiovascular disorder [Fatal]
  - Anaemia [Fatal]
  - Chronic kidney disease [Fatal]
  - Blood creatinine increased [Fatal]
